FAERS Safety Report 12554345 (Version 3)
Quarter: 2016Q3

REPORT INFORMATION
  Report Type: Report from Study
  Country: BR (occurrence: BR)
  Receive Date: 20160713
  Receipt Date: 20160722
  Transmission Date: 20161109
  Serious: Yes (Life-Threatening, Other)
  Sender: FDA-Public Use
  Company Number: BR-VIIV HEALTHCARE LIMITED-BR2016GSK095467

PATIENT
  Age: 25 Year
  Sex: Female

DRUGS (21)
  1. METOCLOPRAMIDE. [Concomitant]
     Active Substance: METOCLOPRAMIDE
  2. RITONAVIR. [Concomitant]
     Active Substance: RITONAVIR
     Indication: HIV INFECTION
     Dosage: 200 MG, UNK
     Route: 048
     Dates: start: 20160408
  3. SERTRALINE [Concomitant]
     Active Substance: SERTRALINE HYDROCHLORIDE
  4. PREDNISONE. [Concomitant]
     Active Substance: PREDNISONE
  5. DARUNAVIR [Suspect]
     Active Substance: DARUNAVIR
     Indication: HIV INFECTION
     Dosage: 1200 MG, UNK
     Route: 048
     Dates: start: 20160408
  6. SULFAMETHOXAZOLE [Concomitant]
     Active Substance: SULFAMETHOXAZOLE
  7. FLUCONAZOLE. [Concomitant]
     Active Substance: FLUCONAZOLE
  8. GSK3684934 [Suspect]
     Active Substance: INVESTIGATIONAL PRODUCT
     Indication: HIV INFECTION
     Dosage: 1200 MG, UNK
     Route: 048
     Dates: start: 20160408
  9. OMEPRAZOLE. [Concomitant]
     Active Substance: OMEPRAZOLE
  10. DEXAMETHASONE. [Concomitant]
     Active Substance: DEXAMETHASONE
  11. BACTRIM [Concomitant]
     Active Substance: SULFAMETHOXAZOLE\TRIMETHOPRIM
  12. GSK3684934 [Suspect]
     Active Substance: INVESTIGATIONAL PRODUCT
     Dosage: UNK
     Route: 048
     Dates: start: 20160408
  13. ACETYLCYSTEINE. [Concomitant]
     Active Substance: ACETYLCYSTEINE
  14. DIPYRONE [Concomitant]
     Active Substance: DIPYRONE
  15. TRAMADOL. [Concomitant]
     Active Substance: TRAMADOL
  16. GSK3684934 [Suspect]
     Active Substance: INVESTIGATIONAL PRODUCT
     Indication: HIV INFECTION
     Dosage: UNK UNK, BID
     Route: 048
     Dates: start: 20160331, end: 20160407
  17. DOLUTEGRAVIR [Suspect]
     Active Substance: DOLUTEGRAVIR
     Indication: HIV INFECTION
     Dosage: 50 MG, UNK
     Route: 048
     Dates: start: 20160408
  18. OSELTAMIVIR [Concomitant]
     Active Substance: OSELTAMIVIR
  19. TRIMETHOPRIM. [Concomitant]
     Active Substance: TRIMETHOPRIM
  20. HYDROXYZINE [Concomitant]
     Active Substance: HYDROXYZINE\HYDROXYZINE HYDROCHLORIDE
  21. CLONAZEPAM. [Concomitant]
     Active Substance: CLONAZEPAM

REACTIONS (1)
  - Immune reconstitution inflammatory syndrome [Recovered/Resolved]

NARRATIVE: CASE EVENT DATE: 20160425
